FAERS Safety Report 22131625 (Version 1)
Quarter: 2023Q1

REPORT INFORMATION
  Report Type: Spontaneous
  Country: FR (occurrence: FR)
  Receive Date: 20230323
  Receipt Date: 20230323
  Transmission Date: 20230417
  Serious: Yes (Hospitalization)
  Sender: FDA-Public Use
  Company Number: None

PATIENT
  Age: 62 Year
  Sex: Male

DRUGS (9)
  1. IMATINIB [Suspect]
     Active Substance: IMATINIB
     Indication: Chronic myeloid leukaemia
     Dosage: 400 MILLIGRAM, QD
     Route: 048
     Dates: start: 20221129, end: 20230225
  2. HYDREA [Concomitant]
     Active Substance: HYDROXYUREA
     Indication: Chronic myeloid leukaemia
     Dosage: UNK
     Route: 048
     Dates: start: 20221109, end: 20221129
  3. LOVENOX [Concomitant]
     Active Substance: ENOXAPARIN SODIUM
     Dosage: 4000 INTERNATIONAL UNIT, QD, PER DAY
     Route: 058
  4. KARDEGIC [Concomitant]
     Active Substance: ASPIRIN DL-LYSINE
     Indication: Prophylaxis
     Dosage: 160 MILLIGRAM, QD, 160 MG PER DAY
     Route: 048
  5. DEPAKOTE ER [Concomitant]
     Active Substance: DIVALPROEX SODIUM
     Indication: Bipolar disorder
     Dosage: 500 MILLIGRAM, MORNING AND EVENING
     Route: 048
  6. OLANZAPINE [Concomitant]
     Active Substance: OLANZAPINE
     Indication: Bipolar disorder
     Dosage: 15 MILLIGRAM, IN THE EVENING
     Route: 048
  7. TROPATEPINE HYDROCHLORIDE [Concomitant]
     Active Substance: TROPATEPINE HYDROCHLORIDE
     Indication: Bipolar disorder
     Dosage: 10 MILLIGRAM, 10 MG IN THE EVENING
     Route: 048
  8. ALLOPURINOL [Concomitant]
     Active Substance: ALLOPURINOL
     Indication: Hyperuricaemia
     Dosage: UNK
     Route: 048
     Dates: start: 20221109, end: 20221227
  9. NICOPATCH [Concomitant]
     Active Substance: NICOTINE
     Dosage: 1 PATCH PER 24 HOURS
     Route: 065

REACTIONS (1)
  - Ischaemic stroke [Recovering/Resolving]

NARRATIVE: CASE EVENT DATE: 20230225
